FAERS Safety Report 7630706-2 (Version None)
Quarter: 2011Q3

REPORT INFORMATION
  Report Type: 
  Country: None (occurrence: None)
  Receive Date: 20110722
  Receipt Date: 20110614
  Transmission Date: 20111222
  Serious: Yes (Other)
  Sender: FDA-Public Use
  Company Number: US-BAXTER-2010BH024548

PATIENT
  Age: 68 Year
  Sex: Female
  Weight: 81 kg

DRUGS (20)
  1. HEPARIN SODIUM 1,000 UNITS AND SODIUM CHLORIDE 0.9% [Suspect]
     Route: 042
     Dates: start: 20071009
  2. HEPARIN SODIUM 5,000 UNITS IN SODIUM CHLORIDE 0.45% [Suspect]
     Route: 042
     Dates: start: 20071004
  3. NITROGLYCERIN [Concomitant]
     Indication: PRODUCT USED FOR UNKNOWN INDICATION
     Route: 065
  4. ASPIRIN [Concomitant]
     Indication: PRODUCT USED FOR UNKNOWN INDICATION
     Route: 065
  5. HEPARIN SODIUM INJECTION [Suspect]
     Indication: CORONARY ARTERY BYPASS
     Route: 042
     Dates: start: 20071004, end: 20071004
  6. HEPARIN SODIUM 1,000 UNITS AND SODIUM CHLORIDE 0.9% [Suspect]
     Indication: ROUTINE HEALTH MAINTENANCE
     Route: 042
     Dates: start: 20071008, end: 20071011
  7. HEPARIN SODIUM 5,000 UNITS IN SODIUM CHLORIDE 0.45% [Suspect]
     Route: 065
  8. METOPROLOL TARTRATE [Concomitant]
     Indication: PRODUCT USED FOR UNKNOWN INDICATION
     Route: 065
  9. WARFARIN SODIUM [Concomitant]
     Indication: PRODUCT USED FOR UNKNOWN INDICATION
     Route: 065
  10. IBUPROFEN [Concomitant]
     Indication: PRODUCT USED FOR UNKNOWN INDICATION
     Route: 065
  11. LISINOPRIL [Concomitant]
     Indication: PRODUCT USED FOR UNKNOWN INDICATION
     Route: 065
  12. HEPARIN SODIUM 5,000 UNITS IN SODIUM CHLORIDE 0.45% [Suspect]
     Route: 042
     Dates: start: 20071005
  13. HEPARIN SODIUM 5,000 UNITS IN SODIUM CHLORIDE 0.45% [Suspect]
     Route: 042
     Dates: start: 20071007
  14. COUMADIN [Suspect]
     Indication: COAGULOPATHY
     Route: 065
     Dates: start: 20070101, end: 20070101
  15. HYDROCHLOROTHIAZIDE [Concomitant]
     Indication: PRODUCT USED FOR UNKNOWN INDICATION
     Route: 065
  16. HEPARIN SODIUM 5,000 UNITS IN SODIUM CHLORIDE 0.45% [Suspect]
     Route: 042
     Dates: start: 20071006
  17. HEPARIN SODIUM INJECTION [Suspect]
     Route: 065
     Dates: start: 20071008, end: 20071008
  18. HEPARIN SODIUM 5,000 UNITS IN SODIUM CHLORIDE 0.45% [Suspect]
     Indication: ANTICOAGULANT THERAPY
     Route: 042
     Dates: start: 20071004
  19. SIMVASTATIN [Concomitant]
     Indication: PRODUCT USED FOR UNKNOWN INDICATION
     Route: 065
  20. TICLOPIDINE HCL [Concomitant]
     Indication: PRODUCT USED FOR UNKNOWN INDICATION
     Route: 065

REACTIONS (19)
  - DYSPNOEA [None]
  - HAEMATURIA [None]
  - URINARY TRACT INFECTION [None]
  - ASTHENIA [None]
  - DEPRESSION [None]
  - HEPARIN-INDUCED THROMBOCYTOPENIA [None]
  - URINARY TRACT INFECTION ENTEROCOCCAL [None]
  - FATIGUE [None]
  - PLEURAL EFFUSION [None]
  - ATRIAL FIBRILLATION [None]
  - PNEUMONIA [None]
  - CONTUSION [None]
  - FALL [None]
  - AMNESIA [None]
  - HOT FLUSH [None]
  - VAGINAL HAEMORRHAGE [None]
  - ABDOMINAL PAIN [None]
  - COAGULOPATHY [None]
  - BURSITIS [None]
